FAERS Safety Report 17185339 (Version 1)
Quarter: 2019Q4

REPORT INFORMATION
  Report Type: Spontaneous
  Country: US (occurrence: US)
  Receive Date: 20191220
  Receipt Date: 20191220
  Transmission Date: 20200122
  Serious: No
  Sender: FDA-Public Use
  Company Number: US-THERAPEUTICSMD-2019TMD03114

PATIENT
  Sex: Female

DRUGS (1)
  1. IMVEXXY [Suspect]
     Active Substance: ESTRADIOL
     Dosage: 1 DOSAGE UNITS, 1X/DAY AT NIGHT
     Route: 067
     Dates: start: 20190906

REACTIONS (1)
  - Vaginal discharge [Recovered/Resolved]

NARRATIVE: CASE EVENT DATE: 20190906
